FAERS Safety Report 18300841 (Version 3)
Quarter: 2020Q4

REPORT INFORMATION
  Report Type: Other
  Country: CA (occurrence: CA)
  Receive Date: 20200923
  Receipt Date: 20201012
  Transmission Date: 20210113
  Serious: Yes (Hospitalization, Other)
  Sender: FDA-Public Use
  Company Number: CA-ROCHE-2682485

PATIENT
  Age: 70 Year
  Sex: Female

DRUGS (29)
  1. CEFPROZIL. [Suspect]
     Active Substance: CEFPROZIL
     Indication: PRODUCT USED FOR UNKNOWN INDICATION
     Route: 065
  2. BILASTINE [Concomitant]
     Active Substance: BILASTINE
     Indication: HYPERSENSITIVITY
     Route: 048
     Dates: start: 201704
  3. XOLAIR [Suspect]
     Active Substance: OMALIZUMAB
     Route: 058
  4. SINGULAIR [Concomitant]
     Active Substance: MONTELUKAST SODIUM
     Indication: ASTHMA
     Route: 048
     Dates: start: 2008
  5. PANTOLOC [Concomitant]
     Active Substance: PANTOPRAZOLE SODIUM
     Indication: GASTROOESOPHAGEAL REFLUX DISEASE
     Route: 048
     Dates: start: 2017
  6. XOLAIR [Suspect]
     Active Substance: OMALIZUMAB
     Route: 058
     Dates: start: 20180821
  7. XOLAIR [Suspect]
     Active Substance: OMALIZUMAB
     Route: 058
     Dates: start: 20190717
  8. XOLAIR [Suspect]
     Active Substance: OMALIZUMAB
     Route: 058
     Dates: start: 20190924
  9. LOSARTAN. [Concomitant]
     Active Substance: LOSARTAN
     Indication: HYPERTENSION
     Route: 048
     Dates: start: 1998
  10. INCRUSE ELLIPTA [Concomitant]
     Active Substance: UMECLIDINIUM BROMIDE
     Indication: ASTHMA
     Route: 055
     Dates: start: 201712
  11. RISEDRONATE [Concomitant]
     Active Substance: RISEDRONATE SODIUM
     Indication: OSTEOPOROSIS
     Route: 048
     Dates: start: 201711
  12. XOLAIR [Suspect]
     Active Substance: OMALIZUMAB
     Route: 058
     Dates: start: 20181212
  13. XOLAIR [Suspect]
     Active Substance: OMALIZUMAB
     Route: 058
     Dates: start: 20200505
  14. XOLAIR [Suspect]
     Active Substance: OMALIZUMAB
     Route: 058
     Dates: start: 20190219
  15. XOLAIR [Suspect]
     Active Substance: OMALIZUMAB
     Route: 058
     Dates: start: 20191022
  16. VENTOLIN [Concomitant]
     Active Substance: ALBUTEROL SULFATE
     Indication: ASTHMA
     Route: 055
     Dates: start: 1998
  17. XOLAIR [Suspect]
     Active Substance: OMALIZUMAB
     Indication: PSORIASIS
     Route: 058
     Dates: start: 20180710
  18. XOLAIR [Suspect]
     Active Substance: OMALIZUMAB
     Route: 058
     Dates: start: 20190305
  19. XOLAIR [Suspect]
     Active Substance: OMALIZUMAB
     Route: 058
  20. ADVAIR HFA [Concomitant]
     Active Substance: FLUTICASONE PROPIONATE\SALMETEROL XINAFOATE
     Indication: ASTHMA
     Route: 055
     Dates: start: 2008
  21. CELEBREX [Concomitant]
     Active Substance: CELECOXIB
     Indication: ARTHRALGIA
     Route: 048
     Dates: start: 2016
  22. AZITHROMYCIN ANHYDROUS. [Concomitant]
     Active Substance: AZITHROMYCIN ANHYDROUS
     Indication: ANTIBIOTIC THERAPY
     Route: 048
     Dates: start: 201711
  23. XOLAIR [Suspect]
     Active Substance: OMALIZUMAB
     Indication: ASTHMA
     Route: 058
     Dates: start: 20180529
  24. XOLAIR [Suspect]
     Active Substance: OMALIZUMAB
     Route: 058
     Dates: start: 20181016
  25. XOLAIR [Suspect]
     Active Substance: OMALIZUMAB
     Route: 058
     Dates: start: 20190731
  26. SERTRALINE [Concomitant]
     Active Substance: SERTRALINE HYDROCHLORIDE
     Indication: ANXIETY
     Route: 048
     Dates: start: 2017
  27. XOLAIR [Suspect]
     Active Substance: OMALIZUMAB
     Route: 058
     Dates: start: 20180918
  28. XOLAIR [Suspect]
     Active Substance: OMALIZUMAB
     Route: 058
     Dates: start: 20191008
  29. XOLAIR [Suspect]
     Active Substance: OMALIZUMAB
     Route: 058
     Dates: start: 20200128

REACTIONS (21)
  - Arthralgia [Unknown]
  - Ligament sprain [Recovering/Resolving]
  - Cataract [Unknown]
  - Pneumonia [Unknown]
  - Dyspnoea [Unknown]
  - Skin plaque [Unknown]
  - Herpes zoster [Unknown]
  - Therapeutic response decreased [Unknown]
  - Intentional product use issue [Unknown]
  - Off label use [Unknown]
  - Skin irritation [Unknown]
  - Productive cough [Unknown]
  - Sputum discoloured [Unknown]
  - Dyspnoea exertional [Unknown]
  - Lung disorder [Unknown]
  - Erythema [Unknown]
  - Drug intolerance [Unknown]
  - Secretion discharge [Unknown]
  - Vomiting [Unknown]
  - Fatigue [Unknown]
  - Muscular weakness [Unknown]

NARRATIVE: CASE EVENT DATE: 201807
